FAERS Safety Report 8581748-4 (Version None)
Quarter: 2012Q3

REPORT INFORMATION
  Report Type: 
  Country: None (occurrence: None)
  Receive Date: 20120720
  Receipt Date: 20110527
  Transmission Date: 20120928
  Serious: Yes (Hospitalization)
  Sender: FDA-Public Use
  Company Number: KV200900427

PATIENT
  Age: 58 Year
  Sex: Female
  Weight: 62.6 kg

DRUGS (16)
  1. HYDROXYZINE HYDROCHLORIDE [Concomitant]
  2. PREDNISONE TAB [Concomitant]
  3. VICODIN [Concomitant]
  4. COREG [Concomitant]
  5. ROBITUSSIN AC (CODEINE PHOSPHATE, GUAIFENESIN, PHENIRAMINE MALEATE) [Concomitant]
  6. BUSPAR [Concomitant]
  7. LIPITOR [Concomitant]
  8. ALBUTEROL [Concomitant]
  9. MORPHINE [Suspect]
     Indication: PAIN
     Dosage: 60 MG, BID, ORAL
     Route: 048
     Dates: start: 20071031, end: 20080501
  10. NAPROXEN [Concomitant]
  11. AMLODIPINE [Concomitant]
  12. CLONIDINE [Concomitant]
  13. PROZAC [Concomitant]
  14. PREMARIN [Concomitant]
  15. XANAX [Concomitant]
  16. RESTORIL [Concomitant]

REACTIONS (43)
  - SUICIDE ATTEMPT [None]
  - LETHARGY [None]
  - CONDITION AGGRAVATED [None]
  - CHEST PAIN [None]
  - PYREXIA [None]
  - LOSS OF CONSCIOUSNESS [None]
  - ACUTE STRESS DISORDER [None]
  - CHILLS [None]
  - SOMNOLENCE [None]
  - NAUSEA [None]
  - CONFUSIONAL STATE [None]
  - HYPOTENSION [None]
  - VOMITING [None]
  - MEMORY IMPAIRMENT [None]
  - ENURESIS [None]
  - CHEST DISCOMFORT [None]
  - ALTERED STATE OF CONSCIOUSNESS [None]
  - ACCIDENTAL OVERDOSE [None]
  - PRODUCTIVE COUGH [None]
  - OEDEMA PERIPHERAL [None]
  - DIARRHOEA [None]
  - DYSPHAGIA [None]
  - FALL [None]
  - NEPHROLITHIASIS [None]
  - DEHYDRATION [None]
  - PNEUMONIA [None]
  - ALCOHOL ABUSE [None]
  - ANXIETY DISORDER [None]
  - UNRESPONSIVE TO STIMULI [None]
  - HEADACHE [None]
  - TACHYCARDIA [None]
  - DYSPEPSIA [None]
  - DIZZINESS [None]
  - SPUTUM DISCOLOURED [None]
  - BRONCHITIS CHRONIC [None]
  - BLOOD PRESSURE INCREASED [None]
  - BRONCHITIS [None]
  - NIGHT SWEATS [None]
  - DYSARTHRIA [None]
  - SINUS BRADYCARDIA [None]
  - DYSPNOEA [None]
  - MUSCLE SPASMS [None]
  - DEATH OF RELATIVE [None]
